FAERS Safety Report 8211311-6 (Version None)
Quarter: 2012Q1

REPORT INFORMATION
  Report Type: 
  Country: None (occurrence: None)
  Receive Date: 20120315
  Receipt Date: 20120312
  Transmission Date: 20120608
  Serious: No
  Sender: FDA-Public Use
  Company Number: US-PFIZER INC-2012043624

PATIENT
  Sex: Male
  Weight: 69.388 kg

DRUGS (2)
  1. CHANTIX [Suspect]
     Indication: SMOKING CESSATION THERAPY
     Dosage: UNK, 2X/DAY
     Route: 048
     Dates: start: 20120214, end: 20120221
  2. ASPIRIN [Concomitant]
     Dosage: UNK

REACTIONS (2)
  - DEPRESSION [None]
  - ABDOMINAL DISCOMFORT [None]
